FAERS Safety Report 4394137-3 (Version None)
Quarter: 2004Q3

REPORT INFORMATION
  Report Type: 
  Country: None (occurrence: None)
  Receive Date: 20040712
  Receipt Date: 20040701
  Transmission Date: 20050211
  Serious: Yes (Hospitalization)
  Sender: FDA-Public Use
  Company Number: PHHO2004AU09612

PATIENT
  Age: 62 Year
  Sex: Male
  Weight: 75 kg

DRUGS (27)
  1. LOPRESSOR [Suspect]
     Indication: HYPERTENSION
     Dosage: 25 MG, BID
     Route: 048
     Dates: start: 20040507, end: 20040508
  2. LOPRESSOR [Suspect]
     Dosage: 25 MG, BID
     Route: 048
     Dates: end: 20040512
  3. ENOXAPARIN SODIUM [Concomitant]
     Indication: ACUTE CORONARY SYNDROME
     Dosage: 70MG
     Route: 058
     Dates: start: 20040420, end: 20040420
  4. TIROFIBAN [Concomitant]
     Indication: ACUTE CORONARY SYNDROME
     Dosage: 18 ML BOLUS
     Route: 042
     Dates: start: 20040420, end: 20040420
  5. TIROFIBAN [Concomitant]
     Dosage: 9 ML/HR
     Route: 042
     Dates: start: 20040420, end: 20040422
  6. PERINDOPRIL [Suspect]
     Indication: HYPERTENSION
     Dosage: 2 MG
     Route: 048
     Dates: start: 20040505, end: 20040508
  7. PERINDOPRIL [Suspect]
     Dosage: 2MG
     Route: 048
     Dates: end: 20040512
  8. CEFAZOLIN [Concomitant]
  9. HEPARIN [Concomitant]
  10. ASPIRIN [Concomitant]
  11. CODEINE PHOSPHATE [Concomitant]
  12. MORPHINE SULFATE [Concomitant]
  13. FUROSEMIDE [Concomitant]
  14. TRAMADOL [Concomitant]
  15. POTASSIUM CHLORIDE [Concomitant]
  16. MAGNESIUM ASPARTATE [Concomitant]
  17. ACETAMINOPHEN [Concomitant]
  18. ALLOPURINOL [Concomitant]
  19. IRON SULFATETHIAMIN COMPOUND TAB [Concomitant]
  20. ONDANSETRON [Concomitant]
  21. SENNA [Concomitant]
  22. COLOXYL [Concomitant]
  23. SORBITOL [Concomitant]
  24. ATORVASTATIN CALCIUM [Concomitant]
  25. OMEPRAZOLE [Concomitant]
  26. ENOXAPARIN SODIUM [Concomitant]
  27. TRAMADOL [Concomitant]

REACTIONS (2)
  - ATRIAL FIBRILLATION [None]
  - HYPOTENSION [None]
